FAERS Safety Report 6456696-6 (Version None)
Quarter: 2009Q4

REPORT INFORMATION
  Report Type: 
  Country: None (occurrence: None)
  Receive Date: 20091125
  Receipt Date: 20091117
  Transmission Date: 20100525
  Serious: Yes (Other)
  Sender: FDA-Public Use
  Company Number: US-WYE-H12192909

PATIENT
  Age: 65 Year
  Sex: Female

DRUGS (1)
  1. TORISEL [Suspect]
     Indication: RENAL CELL CARCINOMA
     Dosage: 8 CYCLES, DOSE NOT PROVIDED

REACTIONS (3)
  - ABDOMINAL PAIN LOWER [None]
  - DIARRHOEA [None]
  - GASTROINTESTINAL DISORDER [None]
